FAERS Safety Report 11536046 (Version 2)
Quarter: 2015Q4

REPORT INFORMATION
  Report Type: Spontaneous
  Country: FR (occurrence: FR)
  Receive Date: 20150922
  Receipt Date: 20151023
  Transmission Date: 20160304
  Serious: Yes (Other)
  Sender: FDA-Public Use
  Company Number: FR-AMGEN-FRASP2015097012

PATIENT
  Age: 65 Year
  Sex: Male
  Weight: 64 kg

DRUGS (2)
  1. XGEVA [Suspect]
     Active Substance: DENOSUMAB
     Indication: PROSTATE CANCER STAGE II
     Dosage: UNK, Q4WK
     Route: 058
     Dates: start: 201406, end: 201508
  2. ENANTONE LP [Concomitant]
     Active Substance: LEUPROLIDE ACETATE
     Indication: METASTASES TO PROSTATE
     Dosage: 11.25 UNK, UNK
     Route: 058
     Dates: start: 20150513

REACTIONS (4)
  - Gingival disorder [Not Recovered/Not Resolved]
  - Tooth disorder [Unknown]
  - Tooth extraction [Unknown]
  - Osteonecrosis of jaw [Unknown]

NARRATIVE: CASE EVENT DATE: 20150509
